FAERS Safety Report 4338526-1 (Version None)
Quarter: 2004Q2

REPORT INFORMATION
  Report Type: 
  Country: None (occurrence: None)
  Receive Date: 20040409
  Receipt Date: 20040402
  Transmission Date: 20050107
  Serious: Yes (Life-Threatening)
  Sender: FDA-Public Use
  Company Number: 205519

PATIENT
  Age: 30 Year
  Sex: Female
  Weight: 63.5 kg

DRUGS (8)
  1. XOLAIR [Suspect]
     Indication: ASTHMA
     Dosage: 150 MG, SINGLE, SUBCUTANEOUS
     Route: 058
     Dates: start: 20031215, end: 20031215
  2. ALLEGRA [Concomitant]
  3. SINGULAIR [Concomitant]
  4. ADVAIR DISKUS [Concomitant]
  5. ALBUTEROL (ALBUTEROL SULFATE, ALBUTEROL) [Concomitant]
  6. NEXIUM [Concomitant]
  7. FLONASE [Concomitant]
  8. POLYGAM (GLOBULIN, IMMUNE) [Concomitant]

REACTIONS (1)
  - ANAPHYLACTIC REACTION [None]
